FAERS Safety Report 12917579 (Version 23)
Quarter: 2018Q1

REPORT INFORMATION
  Report Type: Report from Study
  Country: DE (occurrence: DE)
  Receive Date: 20161107
  Receipt Date: 20180307
  Transmission Date: 20180508
  Serious: Yes (Death, Life-Threatening, Hospitalization, Other)
  Sender: FDA-Public Use
  Company Number: PHHY2016DE146337

PATIENT
  Age: 60 Year
  Sex: Male
  Weight: 56 kg

DRUGS (65)
  1. TAFINLAR [Suspect]
     Active Substance: DABRAFENIB MESYLATE
     Indication: METASTATIC MALIGNANT MELANOMA
     Dosage: 150 MG, BID
     Route: 048
     Dates: start: 20160930, end: 20161017
  2. TAFINLAR [Suspect]
     Active Substance: DABRAFENIB MESYLATE
     Dosage: 150 MG, BID
     Route: 048
     Dates: start: 20161028, end: 20161101
  3. TAFINLAR [Suspect]
     Active Substance: DABRAFENIB MESYLATE
     Dosage: 75 MG, BID
     Route: 048
     Dates: start: 20161202, end: 20161202
  4. SIMVASTATINE [Concomitant]
     Active Substance: SIMVASTATIN
     Dosage: 20 MG, QD
     Route: 048
     Dates: start: 20161108
  5. ORAMORPH [Concomitant]
     Active Substance: MORPHINE SULFATE
     Dosage: 10 MG, TID
     Route: 048
     Dates: start: 20170703, end: 20170703
  6. LAXANS [Concomitant]
     Dosage: 5 MG, BID
     Route: 048
     Dates: start: 20170704, end: 20170704
  7. MORPHINE [Concomitant]
     Active Substance: MORPHINE
     Indication: MALIGNANT MELANOMA
     Dosage: 5 MG, QD
     Route: 048
     Dates: start: 20170628, end: 20170630
  8. PANTOZOL [Concomitant]
     Active Substance: PANTOPRAZOLE SODIUM
     Dosage: 40 MG, QD
     Route: 042
     Dates: start: 20161105, end: 20161105
  9. MCP [Concomitant]
     Active Substance: METOCLOPRAMIDE HYDROCHLORIDE
     Dosage: 10 MG, QD
     Route: 048
     Dates: start: 20170214, end: 20170214
  10. MCP [Concomitant]
     Active Substance: METOCLOPRAMIDE HYDROCHLORIDE
     Dosage: 10 MG, BID
     Route: 048
     Dates: start: 20170225
  11. PREGABALIN. [Concomitant]
     Active Substance: PREGABALIN
     Indication: PRODUCT USED FOR UNKNOWN INDICATION
     Dosage: 50 MG, QD
     Route: 048
     Dates: start: 20161118, end: 20170213
  12. PREGABALIN. [Concomitant]
     Active Substance: PREGABALIN
     Dosage: 75 MG, QD
     Route: 048
     Dates: start: 20170214, end: 20170214
  13. PREGABALIN. [Concomitant]
     Active Substance: PREGABALIN
     Dosage: 75 MG, QD
     Route: 048
     Dates: start: 20170628, end: 20170628
  14. ASPIRIN. [Concomitant]
     Active Substance: ASPIRIN
     Indication: CEREBROVASCULAR ACCIDENT
     Dosage: 100 MG, QD
     Route: 048
     Dates: start: 201512, end: 20161104
  15. LAXANS [Concomitant]
     Indication: PRODUCT USED FOR UNKNOWN INDICATION
     Dosage: 5 MG, QD
     Route: 048
     Dates: start: 20170703, end: 20170703
  16. LAXANS [Concomitant]
     Dosage: 5 MG, BID
     Route: 048
     Dates: start: 20170706
  17. DORMICUM [Concomitant]
     Indication: PRODUCT USED FOR UNKNOWN INDICATION
     Dosage: 5 MG, QD
     Route: 065
     Dates: start: 20161104, end: 20161104
  18. HYDROMORPHONE [Concomitant]
     Active Substance: HYDROMORPHONE
     Indication: MALIGNANT MELANOMA
     Dosage: 4 MG, TID
     Route: 048
     Dates: start: 20170215, end: 20170216
  19. HYDROMORPHONE [Concomitant]
     Active Substance: HYDROMORPHONE
     Dosage: 2 MG, BID
     Route: 048
     Dates: start: 20170627
  20. DEXAMETHASONE. [Concomitant]
     Active Substance: DEXAMETHASONE
     Indication: MALIGNANT MELANOMA
     Dosage: 4 MG, QD
     Route: 048
     Dates: start: 20170215, end: 20170217
  21. DEXAMETHASONE. [Concomitant]
     Active Substance: DEXAMETHASONE
     Dosage: 2 MG, QD
     Route: 048
     Dates: start: 20170218, end: 20170227
  22. PALEXIA [Concomitant]
     Active Substance: TAPENTADOL HYDROCHLORIDE
     Indication: POLYNEUROPATHY ALCOHOLIC
     Dosage: 50 MG, QD
     Route: 048
     Dates: start: 20161104, end: 20161104
  23. DIPIDOLOR [Concomitant]
     Active Substance: PIRITRAMIDE
     Indication: POLYNEUROPATHY ALCOHOLIC
     Dosage: 7.5 MG, QD
     Route: 058
     Dates: start: 20161103, end: 20161103
  24. PREGABALIN. [Concomitant]
     Active Substance: PREGABALIN
     Dosage: 100 MG, BID
     Route: 048
     Dates: start: 20170628, end: 20170628
  25. FREKA-CLYSS [Concomitant]
     Indication: PRODUCT USED FOR UNKNOWN INDICATION
     Dosage: 120 ML, QD
     Route: 054
     Dates: start: 20170705, end: 20170705
  26. ORAMORPH [Concomitant]
     Active Substance: MORPHINE SULFATE
     Dosage: 10 MG, TID
     Route: 048
     Dates: start: 20170701, end: 20170701
  27. ORAMORPH [Concomitant]
     Active Substance: MORPHINE SULFATE
     Dosage: 10 MG, QD
     Route: 048
     Dates: start: 20170702, end: 20170702
  28. ORAMORPH [Concomitant]
     Active Substance: MORPHINE SULFATE
     Dosage: 10 MG, BID
     Route: 048
     Dates: start: 20170704, end: 20170704
  29. HYDROMORPHONE [Concomitant]
     Active Substance: HYDROMORPHONE
     Dosage: 2 MG, QD
     Route: 048
     Dates: start: 20170217, end: 20170219
  30. HYDROMORPHONE [Concomitant]
     Active Substance: HYDROMORPHONE
     Dosage: 4 MG, BID
     Route: 048
     Dates: start: 20170217, end: 20170219
  31. TAFINLAR [Suspect]
     Active Substance: DABRAFENIB MESYLATE
     Dosage: 150 MG, BID
     Route: 048
     Dates: start: 20170111, end: 20170308
  32. TRAMETINIB [Suspect]
     Active Substance: TRAMETINIB
     Dosage: 1.5 MG, QD
     Route: 048
     Dates: start: 20161028, end: 20161101
  33. TRIMINEURIN [Concomitant]
     Active Substance: TRIMIPRAMINE MALEATE
     Dosage: 12.5 MG, QD
     Route: 048
     Dates: start: 20170627
  34. ARIXTRA [Concomitant]
     Active Substance: FONDAPARINUX SODIUM
     Indication: PULMONARY EMBOLISM
  35. HYDROMORPHONE [Concomitant]
     Active Substance: HYDROMORPHONE
     Dosage: 4 MG, QD
     Dates: start: 20170220, end: 20170223
  36. HYDROMORPHONE [Concomitant]
     Active Substance: HYDROMORPHONE
     Dosage: 4 MG, TID
     Route: 048
     Dates: start: 20170704
  37. TAFINLAR [Suspect]
     Active Substance: DABRAFENIB MESYLATE
     Dosage: 150 MG, BID
     Route: 048
     Dates: start: 20161109, end: 20161201
  38. ASPIRIN. [Concomitant]
     Active Substance: ASPIRIN
     Dosage: 50 MG, QD
     Route: 048
     Dates: start: 20170227
  39. PANTOZOL [Concomitant]
     Active Substance: PANTOPRAZOLE SODIUM
     Dosage: 40 MG, QD
     Route: 048
     Dates: start: 20161106
  40. MCP [Concomitant]
     Active Substance: METOCLOPRAMIDE HYDROCHLORIDE
     Indication: PRODUCT USED FOR UNKNOWN INDICATION
     Dosage: 10 MG, QD
     Route: 042
     Dates: start: 20161102, end: 20161104
  41. TRAMETINIB [Suspect]
     Active Substance: TRAMETINIB
     Indication: METASTATIC MALIGNANT MELANOMA
     Dosage: 2 MG, QD
     Route: 048
     Dates: start: 20160930, end: 20161017
  42. ASPIRIN. [Concomitant]
     Active Substance: ASPIRIN
     Dosage: 50 MG, QD
     Route: 048
     Dates: start: 20161115, end: 20170213
  43. TRIMINEURIN [Concomitant]
     Active Substance: TRIMIPRAMINE MALEATE
     Indication: DEPRESSION
     Dosage: 25 MG, QD
     Route: 048
     Dates: end: 20161104
  44. TRIMINEURIN [Concomitant]
     Active Substance: TRIMIPRAMINE MALEATE
     Dosage: 25 MG, QD
     Route: 048
     Dates: start: 20161108, end: 20170626
  45. MCP [Concomitant]
     Active Substance: METOCLOPRAMIDE HYDROCHLORIDE
     Dosage: 10 MG, TID
     Route: 048
     Dates: start: 20170215, end: 20170224
  46. HYDROMORPHONE [Concomitant]
     Active Substance: HYDROMORPHONE
     Dosage: 2 MG, BID
     Route: 048
     Dates: start: 20170220, end: 20170223
  47. HYDROMORPHONE [Concomitant]
     Active Substance: HYDROMORPHONE
     Dosage: 4 MG, BID
     Route: 048
     Dates: start: 20170630, end: 20170703
  48. PALEXIA [Concomitant]
     Active Substance: TAPENTADOL HYDROCHLORIDE
     Dosage: 50 MG, BID
     Route: 048
     Dates: start: 20161108, end: 20161117
  49. PALEXIA [Concomitant]
     Active Substance: TAPENTADOL HYDROCHLORIDE
     Dosage: 100 MG, BID
     Route: 048
     Dates: start: 20161118
  50. PREGABALIN. [Concomitant]
     Active Substance: PREGABALIN
     Dosage: 75 MG, BID
     Route: 048
     Dates: start: 20170224, end: 20170226
  51. PREGABALIN. [Concomitant]
     Active Substance: PREGABALIN
     Dosage: 25 MG, QD
     Route: 048
     Dates: start: 20170214, end: 20170215
  52. PREGABALIN. [Concomitant]
     Active Substance: PREGABALIN
     Dosage: 25 MG, BID
     Route: 048
     Dates: start: 20170226, end: 20170227
  53. PREGABALIN. [Concomitant]
     Active Substance: PREGABALIN
     Dosage: 100 MG, BID
     Route: 048
     Dates: start: 20170227, end: 20170628
  54. PREGABALIN. [Concomitant]
     Active Substance: PREGABALIN
     Dosage: 75 MG, BID
     Route: 048
     Dates: start: 20170629
  55. PREGABALIN. [Concomitant]
     Active Substance: PREGABALIN
     Dosage: 100 MG, QD
     Route: 048
     Dates: start: 20170629
  56. ARIXTRA [Concomitant]
     Active Substance: FONDAPARINUX SODIUM
     Indication: PRODUCT USED FOR UNKNOWN INDICATION
     Dosage: 2.5 MG, QD
     Route: 058
     Dates: start: 20161106, end: 20161121
  57. DIPIDOLOR [Concomitant]
     Active Substance: PIRITRAMIDE
     Dosage: 15 MG, QD
     Route: 058
     Dates: start: 20161104, end: 20161107
  58. PREGABALIN. [Concomitant]
     Active Substance: PREGABALIN
     Dosage: 75 MG, TID
     Route: 048
     Dates: start: 20170215, end: 20170222
  59. PREGABALIN. [Concomitant]
     Active Substance: PREGABALIN
     Dosage: 25 MG, QD
     Route: 048
     Dates: start: 20170224, end: 20170225
  60. SIMVASTATINE [Concomitant]
     Active Substance: SIMVASTATIN
     Indication: HYPERLIPIDAEMIA
     Dosage: 20 MG, QD
     Route: 048
     Dates: end: 20161104
  61. ORAMORPH [Concomitant]
     Active Substance: MORPHINE SULFATE
     Indication: MALIGNANT MELANOMA
     Dosage: 10 MG, QD
     Route: 048
     Dates: start: 20170630, end: 20170630
  62. PANTOZOL [Concomitant]
     Active Substance: PANTOPRAZOLE SODIUM
     Indication: PRODUCT USED FOR UNKNOWN INDICATION
     Dosage: 80 MG, QD
     Route: 042
     Dates: start: 20161104, end: 20161104
  63. ARIXTRA [Concomitant]
     Active Substance: FONDAPARINUX SODIUM
     Indication: DEEP VEIN THROMBOSIS
     Dosage: 25 MG, QD
     Route: 058
     Dates: start: 20161102, end: 20161103
  64. HYDROMORPHONE [Concomitant]
     Active Substance: HYDROMORPHONE
     Dosage: 2 MG, TID
     Route: 048
     Dates: start: 20170224, end: 20170626
  65. TAVOR//LORAZEPAM [Concomitant]
     Active Substance: LORAZEPAM
     Indication: PRODUCT USED FOR UNKNOWN INDICATION
     Dosage: 1 MG, QD
     Route: 048
     Dates: start: 20170702, end: 20170702

REACTIONS (32)
  - Diarrhoea [Recovered/Resolved]
  - Blood alkaline phosphatase increased [Recovered/Resolved with Sequelae]
  - Platelet count decreased [Unknown]
  - Haematocrit decreased [Unknown]
  - Gamma-glutamyltransferase increased [Recovered/Resolved]
  - Neutrophilia [Recovered/Resolved]
  - Malignant neoplasm progression [Fatal]
  - Red blood cell count decreased [Unknown]
  - Blood bilirubin increased [Unknown]
  - General physical health deterioration [Recovered/Resolved]
  - Lymphopenia [Recovered/Resolved]
  - C-reactive protein increased [Recovered/Resolved with Sequelae]
  - General physical health deterioration [Recovered/Resolved]
  - Dehydration [Recovered/Resolved]
  - Small intestinal haemorrhage [Recovered/Resolved]
  - Mean cell haemoglobin increased [Unknown]
  - Blood alkaline phosphatase increased [Not Recovered/Not Resolved]
  - General physical health deterioration [Recovered/Resolved with Sequelae]
  - Platelet count increased [Unknown]
  - C-reactive protein increased [Recovering/Resolving]
  - Thrombocytosis [Not Recovered/Not Resolved]
  - Anaemia [Not Recovered/Not Resolved]
  - Malignant melanoma [Fatal]
  - Haemoglobin decreased [Unknown]
  - Gamma-glutamyltransferase increased [Recovered/Resolved with Sequelae]
  - Neutrophil count increased [Unknown]
  - Blood creatine phosphokinase increased [Not Recovered/Not Resolved]
  - Anaemia of malignant disease [Recovered/Resolved with Sequelae]
  - Anaemia of malignant disease [Not Recovered/Not Resolved]
  - Thrombocytopenia [Recovered/Resolved]
  - Mean cell haemoglobin concentration increased [Unknown]
  - Incorrect dose administered [Unknown]

NARRATIVE: CASE EVENT DATE: 20161018
